FAERS Safety Report 6419009-1 (Version None)
Quarter: 2009Q4

REPORT INFORMATION
  Report Type: 
  Country: None (occurrence: None)
  Receive Date: 20091026
  Receipt Date: 20091020
  Transmission Date: 20100525
  Serious: Yes (Hospitalization)
  Sender: FDA-Public Use
  Company Number: 2009011644

PATIENT
  Sex: Male

DRUGS (4)
  1. TREANDA [Suspect]
     Indication: CHRONIC LYMPHOCYTIC LEUKAEMIA
     Dosage: (154 MG), INTRAVENOUS
     Route: 042
     Dates: start: 20090727
  2. TREANDA [Suspect]
     Indication: CHRONIC LYMPHOCYTIC LEUKAEMIA
     Dosage: (154 MG), INTRAVENOUS
     Route: 042
     Dates: start: 20090818
  3. TREANDA [Suspect]
     Indication: CHRONIC LYMPHOCYTIC LEUKAEMIA
     Dosage: (154 MG), INTRAVENOUS
     Route: 042
     Dates: start: 20090819
  4. RITUXIMAB (RITUXIMAB) [Concomitant]

REACTIONS (1)
  - APLASTIC ANAEMIA [None]
